FAERS Safety Report 5482730-6 (Version None)
Quarter: 2007Q4

REPORT INFORMATION
  Report Type: 
  Country: None (occurrence: None)
  Receive Date: 20071011
  Receipt Date: 20070928
  Transmission Date: 20080405
  Serious: Yes (Hospitalization, Other)
  Sender: FDA-Public Use
  Company Number: US-PFIZER INC-2007044780

PATIENT
  Sex: Female
  Weight: 86.2 kg

DRUGS (1)
  1. CELEBREX [Suspect]
     Indication: ARTHRITIS

REACTIONS (1)
  - MYOCARDIAL INFARCTION [None]
